FAERS Safety Report 17824467 (Version 2)
Quarter: 2020Q3

REPORT INFORMATION
  Report Type: Spontaneous
  Country: ES (occurrence: ES)
  Receive Date: 20200526
  Receipt Date: 20200708
  Transmission Date: 20201102
  Serious: Yes (Death)
  Sender: FDA-Public Use
  Company Number: ES-BAYER-2020-091340

PATIENT
  Age: 86 Year
  Sex: Male

DRUGS (10)
  1. XOFIGO [Suspect]
     Active Substance: RADIUM RA-223 DICHLORIDE
     Indication: PROSTATE CANCER
     Dosage: 55 KBQ PER KG OF WEIGHT
     Dates: start: 20200408, end: 20200408
  2. DEMILOS [Concomitant]
     Active Substance: CALCIUM CARBONATE\CHOLECALCIFEROL
  3. XOFIGO [Suspect]
     Active Substance: RADIUM RA-223 DICHLORIDE
     Indication: PROSTATE CANCER
     Dosage: 55 KBQ PER KG OF WEIGHT
     Dates: start: 20200212, end: 20200212
  4. XOFIGO [Suspect]
     Active Substance: RADIUM RA-223 DICHLORIDE
     Indication: PROSTATE CANCER
     Dosage: 55 KBQ PER KG OF WEIGHT
     Dates: start: 20200311, end: 20200311
  5. SOLUDRONATE SEMANAL [Concomitant]
  6. XOFIGO [Suspect]
     Active Substance: RADIUM RA-223 DICHLORIDE
     Indication: PROSTATE CANCER
     Dosage: 55 KBQ PER KG OF WEIGHT
     Dates: start: 20200115, end: 20200115
  7. FUROSEMIDE. [Concomitant]
     Active Substance: FUROSEMIDE
  8. FORTECORTIN [DEXAMETHASONE] [Concomitant]
     Active Substance: DEXAMETHASONE
  9. DELTIUS [Concomitant]
     Active Substance: CHOLECALCIFEROL
  10. DUROGESIC [Concomitant]
     Active Substance: FENTANYL

REACTIONS (1)
  - Infective exacerbation of bronchiectasis [Fatal]

NARRATIVE: CASE EVENT DATE: 202005
